FAERS Safety Report 20698500 (Version 1)
Quarter: 2022Q2

REPORT INFORMATION
  Report Type: Spontaneous
  Country: US (occurrence: US)
  Receive Date: 20220412
  Receipt Date: 20220412
  Transmission Date: 20220721
  Serious: No
  Sender: FDA-Public Use
  Company Number: US-GLAXOSMITHKLINE-US2022062494

PATIENT
  Sex: Female

DRUGS (1)
  1. TRELEGY ELLIPTA [Suspect]
     Active Substance: FLUTICASONE FUROATE\UMECLIDINIUM BROMIDE\VILANTEROL TRIFENATATE
     Indication: Product used for unknown indication
     Dosage: 1 PUFF(S), QD , TRELEGY 200. ONE PUFF DAILY.
     Route: 055
     Dates: start: 202202

REACTIONS (4)
  - Headache [Unknown]
  - Vision blurred [Unknown]
  - Hot flush [Unknown]
  - Night sweats [Unknown]

NARRATIVE: CASE EVENT DATE: 20220101
